FAERS Safety Report 9570531 (Version 1)
Quarter: 2013Q3

REPORT INFORMATION
  Report Type: Spontaneous
  Country: US (occurrence: None)
  Receive Date: 20130926
  Receipt Date: 20130926
  Transmission Date: 20140515
  Serious: Yes (Other)
  Sender: FDA-Public Use
  Company Number: None

PATIENT
  Age: 69 Year
  Sex: Male
  Weight: 87.09 kg

DRUGS (1)
  1. LOSARTAN POTASSIUM [Suspect]
     Indication: BLOOD PRESSURE MANAGEMENT
     Dosage: 1 TABLET, ONCE DAILY, TAKEN BY MOUTH
     Dates: start: 20130903

REACTIONS (2)
  - Gingival pain [None]
  - Toothache [None]
